FAERS Safety Report 4523005-9 (Version None)
Quarter: 2004Q4

REPORT INFORMATION
  Report Type: 
  Country: None (occurrence: None)
  Receive Date: 20041207
  Receipt Date: 20041207
  Transmission Date: 20050328
  Serious: Yes (Hospitalization)
  Sender: FDA-Public Use
  Company Number: None

PATIENT
  Age: 51 Year
  Sex: Female
  Weight: 62.7 kg

DRUGS (7)
  1. VANCOMYCIN [Suspect]
     Indication: INTERVERTEBRAL DISCITIS
     Dosage: 1GM  Q12H INTRAVENOUS
     Route: 042
     Dates: start: 20041111, end: 20041130
  2. VANCOMYCIN [Suspect]
     Indication: OSTEOMYELITIS
     Dosage: 1GM  Q12H INTRAVENOUS
     Route: 042
     Dates: start: 20041111, end: 20041130
  3. OXYCODONE HCL [Concomitant]
  4. PHENERGAN [Concomitant]
  5. RIFAMPICIN [Concomitant]
  6. HYDROCHLOROTHIAZIDE [Concomitant]
  7. COMPAZINE [Concomitant]

REACTIONS (2)
  - DRUG LEVEL INCREASED [None]
  - RENAL FAILURE ACUTE [None]
